FAERS Safety Report 18593514 (Version 1)
Quarter: 2020Q4

REPORT INFORMATION
  Report Type: Spontaneous
  Country: CN (occurrence: CN)
  Receive Date: 20201208
  Receipt Date: 20201208
  Transmission Date: 20210114
  Serious: Yes (Other)
  Sender: FDA-Public Use
  Company Number: CN-BAXTER-2020BAX024610

PATIENT
  Age: 42 Year
  Sex: Female
  Weight: 54.5 kg

DRUGS (8)
  1. DOXORUBICIN HYDROCHLORIDE LIPOSOMAL [Suspect]
     Active Substance: DOXORUBICIN HYDROCHLORIDE
     Indication: SYNOVIAL SARCOMA
     Dosage: DOXORUBICIN HYDROCHLORIDE LIPOSOMAL + 5% GLUCOSE (D1-D3)
     Route: 041
     Dates: start: 20201109, end: 20201111
  2. DOXORUBICIN HYDROCHLORIDE LIPOSOMAL [Suspect]
     Active Substance: DOXORUBICIN HYDROCHLORIDE
     Dosage: DOSE RE-INTRODUCED, DOXORUBICIN HYDROCHLORIDE LIPOSOMAL + 5% GLUCOSE
     Route: 041
     Dates: start: 202011
  3. HOLOXAN [Suspect]
     Active Substance: IFOSFAMIDE
     Indication: SYNOVIAL SARCOMA
     Dosage: IFOSFAMIDE + 0.9% SODIUM CHLORIDE (D1-D5) OF 1000ML
     Route: 041
     Dates: start: 20201109, end: 20201113
  4. GLUCOSE [Suspect]
     Active Substance: DEXTROSE
     Indication: MEDICATION DILUTION
     Dosage: 5% GLUCOSE + DOXORUBICIN HYDROCHLORIDE LIPOSOMAL (D1-D3)
     Route: 041
     Dates: start: 20201109, end: 20201111
  5. SODIUM CHLORIDE. [Suspect]
     Active Substance: SODIUM CHLORIDE
     Indication: MEDICATION DILUTION
     Dosage: 0.9% SODIUM CHLORIDE + IFOSFAMIDE 2G (D1-D5)
     Route: 041
     Dates: start: 20201109, end: 20201113
  6. SODIUM CHLORIDE. [Suspect]
     Active Substance: SODIUM CHLORIDE
     Dosage: DOSE RE-INTRODUCED, 0.9% SODIUM CHLORIDE + IFOSFAMIDE
     Route: 041
     Dates: start: 202011
  7. GLUCOSE [Suspect]
     Active Substance: DEXTROSE
     Dosage: DOSE RE-INTRODUCED, 5% GLUCOSE + DOXORUBICIN HYDROCHLORIDE LIPOSOMAL
     Route: 041
     Dates: start: 202011
  8. HOLOXAN [Suspect]
     Active Substance: IFOSFAMIDE
     Dosage: DOSE RE-INTRODUCED, IFOSFAMIDE + 0.9% SODIUM CHLORIDE
     Route: 041
     Dates: start: 202011

REACTIONS (1)
  - Hypothyroidism [Not Recovered/Not Resolved]

NARRATIVE: CASE EVENT DATE: 20201114
